FAERS Safety Report 4653303-X (Version None)
Quarter: 2005Q2

REPORT INFORMATION
  Report Type: 
  Country: None (occurrence: None)
  Receive Date: 20050503
  Receipt Date: 20050420
  Transmission Date: 20051028
  Serious: Yes (Life-Threatening, Hospitalization)
  Sender: FDA-Public Use
  Company Number: HQWYE902407JUL04

PATIENT
  Age: 24 Year
  Sex: Male

DRUGS (2)
  1. PROPRANOLOL HYDROCHLORIDE [Suspect]
     Indication: STRESS
     Dosage: SEE IMAGE
     Route: 048
     Dates: end: 20040601
  2. PROPRANOLOL HYDROCHLORIDE [Suspect]
     Indication: STRESS
     Dosage: SEE IMAGE
     Route: 048
     Dates: start: 20040601

REACTIONS (5)
  - BRUGADA SYNDROME [None]
  - INTENTIONAL MISUSE [None]
  - OVERDOSE [None]
  - PALLOR [None]
  - SUICIDE ATTEMPT [None]
